FAERS Safety Report 12875107 (Version 1)
Quarter: 2016Q4

REPORT INFORMATION
  Report Type: Spontaneous
  Country: US (occurrence: US)
  Receive Date: 20161023
  Receipt Date: 20161023
  Transmission Date: 20170207
  Serious: No
  Sender: FDA-Public Use
  Company Number: US-009507513-1610USA008286

PATIENT
  Age: 19 Year
  Sex: Female
  Weight: 68.03 kg

DRUGS (1)
  1. NEXPLANON [Suspect]
     Active Substance: ETONOGESTREL
     Indication: CONTRACEPTION
     Dosage: 1 ROD,  EVERY 3 YEARS
     Route: 059
     Dates: start: 20150514

REACTIONS (3)
  - Headache [Unknown]
  - Muscle spasms [Unknown]
  - Implant site pain [Unknown]

NARRATIVE: CASE EVENT DATE: 2015
